FAERS Safety Report 6168035-9 (Version None)
Quarter: 2009Q2

REPORT INFORMATION
  Report Type: 
  Country: None (occurrence: None)
  Receive Date: 20090423
  Receipt Date: 20090407
  Transmission Date: 20091009
  Serious: Yes (Life-Threatening)
  Sender: FDA-Public Use
  Company Number: 000631

PATIENT
  Sex: Female
  Weight: 65 kg

DRUGS (1)
  1. VIMPAT [Suspect]
     Indication: EPILEPSY
     Dosage: (50 MG BID ORAL)
     Route: 048
     Dates: start: 20090309, end: 20090310

REACTIONS (1)
  - ANGIOEDEMA [None]
